FAERS Safety Report 10784513 (Version 1)
Quarter: 2015Q1

REPORT INFORMATION
  Report Type: Spontaneous
  Country: US (occurrence: None)
  Receive Date: 20150209
  Receipt Date: 20150209
  Transmission Date: 20150721
  Serious: Yes (Hospitalization, Disabling)
  Sender: FDA-Public Use
  Company Number: None

PATIENT
  Age: 18 Year
  Sex: Male
  Weight: 68.04 kg

DRUGS (4)
  1. PAXIL [Suspect]
     Active Substance: PAROXETINE HYDROCHLORIDE
     Indication: DEPRESSION
     Dosage: 1 PILL
     Route: 048
     Dates: start: 20130701, end: 20150206
  2. PAXIL [Suspect]
     Active Substance: PAROXETINE HYDROCHLORIDE
     Indication: ANXIETY
     Dosage: 1 PILL
     Route: 048
     Dates: start: 20130701, end: 20150206
  3. PAXIL [Suspect]
     Active Substance: PAROXETINE HYDROCHLORIDE
     Indication: LETHARGY
     Dosage: 1 PILL
     Route: 048
     Dates: start: 20130701, end: 20150206
  4. PAXIL [Suspect]
     Active Substance: PAROXETINE HYDROCHLORIDE
     Indication: ASTHENIA
     Dosage: 1 PILL
     Route: 048
     Dates: start: 20130701, end: 20150206

REACTIONS (4)
  - Depression [None]
  - Suicide attempt [None]
  - Lethargy [None]
  - Asthenia [None]

NARRATIVE: CASE EVENT DATE: 20141216
